FAERS Safety Report 6410568-1 (Version None)
Quarter: 2009Q4

REPORT INFORMATION
  Report Type: 
  Country: None (occurrence: None)
  Receive Date: 20091021
  Receipt Date: 20091021
  Transmission Date: 20100525
  Serious: No
  Sender: FDA-Public Use
  Company Number: None

PATIENT
  Age: 62 Year
  Sex: Male
  Weight: 68 kg

DRUGS (1)
  1. VOLTAREN [Suspect]
     Indication: ARTHRALGIA
     Dosage: HALF INCH SQUEEZED OUT OF THE 3 TIMES IN A DAY CUTANEOUS
     Route: 003
     Dates: start: 20091008, end: 20091008

REACTIONS (4)
  - BALANCE DISORDER [None]
  - HAEMATOCHEZIA [None]
  - LETHARGY [None]
  - MALAISE [None]
